FAERS Safety Report 11411284 (Version 2)
Quarter: 2015Q3

REPORT INFORMATION
  Report Type: Spontaneous
  Country: US (occurrence: US)
  Receive Date: 20150821
  Receipt Date: 20150903
  Transmission Date: 20151125
  Serious: No
  Sender: FDA-Public Use
  Company Number: US-ELI_LILLY_AND_COMPANY-US201005007090

PATIENT
  Age: 55 Year
  Sex: Male

DRUGS (4)
  1. HUMULIN R [Suspect]
     Active Substance: INSULIN HUMAN
     Dosage: 55 U, UNKNOWN
     Dates: start: 20091207
  2. HUMULIN R [Suspect]
     Active Substance: INSULIN HUMAN
     Dosage: 38 U, UNKNOWN
     Dates: start: 20091207
  3. HUMULIN R [Suspect]
     Active Substance: INSULIN HUMAN
     Dosage: 58 U, UNKNOWN
     Dates: start: 20091207
  4. HUMALOG [Suspect]
     Active Substance: INSULIN LISPRO

REACTIONS (2)
  - Poor quality drug administered [Unknown]
  - Wrong technique in product usage process [Unknown]

NARRATIVE: CASE EVENT DATE: 20091207
